FAERS Safety Report 9449621 (Version 1)
Quarter: 2013Q3

REPORT INFORMATION
  Report Type: Spontaneous
  Country: US (occurrence: US)
  Receive Date: 20130809
  Receipt Date: 20130809
  Transmission Date: 20140515
  Serious: No
  Sender: FDA-Public Use
  Company Number: US-PFIZER INC-2013154672

PATIENT
  Age: 63 Year
  Sex: Female
  Weight: 60.77 kg

DRUGS (7)
  1. LYRICA [Suspect]
     Indication: NEURALGIA
     Dosage: 50 MG, 2X/DAY
  2. TOPAMAX [Suspect]
     Indication: GRAND MAL CONVULSION
     Dosage: 150 MG, 4X/DAY
     Dates: start: 2008
  3. VIMPAT [Concomitant]
     Indication: GRAND MAL CONVULSION
     Dosage: UNK, 2X/DAY
  4. ZOLPIDEM [Concomitant]
     Indication: SLEEP DISORDER
     Dosage: 10 MG, 1X/DAY
  5. VALTREX [Concomitant]
     Indication: HERPES ZOSTER
     Dosage: 1 MG, 1X/DAY
  6. CLONAZEPAM [Concomitant]
     Indication: HERPES ZOSTER
     Dosage: UNK, AS NEEDED
  7. RESTORIL [Concomitant]
     Dosage: 30 MG, 1X/DAY AT BEDTIME

REACTIONS (1)
  - Alopecia [Not Recovered/Not Resolved]
